FAERS Safety Report 8214109-8 (Version None)
Quarter: 2012Q1

REPORT INFORMATION
  Report Type: 
  Country: None (occurrence: None)
  Receive Date: 20120314
  Receipt Date: 20120314
  Transmission Date: 20120608
  Serious: Yes (Hospitalization)
  Sender: FDA-Public Use
  Company Number: None

PATIENT
  Age: 82 Year
  Sex: Female
  Weight: 74.54 kg

DRUGS (15)
  1. NITROGLYCERIN [Concomitant]
  2. ASPIRIN [Suspect]
     Indication: CORONARY ARTERY DISEASE
     Dosage: 81MG DAILY PO CHRONIC
     Route: 048
  3. AVAPRO [Concomitant]
  4. PREDNISONE [Suspect]
     Dosage: RECENT  HAD ALREADY FINISHED AS OUTPT
  5. PROTONIX [Concomitant]
  6. COLACE [Concomitant]
  7. CA + VIT D [Concomitant]
  8. COREG [Concomitant]
  9. VITAMIN B-12 [Concomitant]
  10. IRON SULFATETHIAMIN COMPOUND TAB [Concomitant]
  11. VITAMIN D [Concomitant]
  12. M.V.I. [Concomitant]
  13. CRESTOR [Concomitant]
  14. ANTIVERT [Concomitant]
  15. VIT D3 [Concomitant]

REACTIONS (3)
  - UPPER GASTROINTESTINAL HAEMORRHAGE [None]
  - PEPTIC ULCER [None]
  - GASTRITIS [None]
